FAERS Safety Report 9130424 (Version 1)
Quarter: 2013Q1

REPORT INFORMATION
  Report Type: Spontaneous
  Country: US (occurrence: US)
  Receive Date: 20130301
  Receipt Date: 20130301
  Transmission Date: 20140127
  Serious: Yes (Other)
  Sender: FDA-Public Use
  Company Number: US-B.I. PHARMACEUTICALS,INC./RIDGEFIELD-2013-BI-04501BP

PATIENT
  Age: 49 Year
  Sex: Male

DRUGS (2)
  1. VIRAMUNE [Suspect]
     Dosage: 400 MG
     Route: 048
  2. ANTIBIOTIC [Concomitant]

REACTIONS (4)
  - Pneumonia necrotising [Unknown]
  - Pyrexia [Unknown]
  - Chills [Unknown]
  - Liver function test abnormal [Recovered/Resolved]
